FAERS Safety Report 22599796 (Version 6)
Quarter: 2025Q3

REPORT INFORMATION
  Report Type: Spontaneous
  Country: EU (occurrence: EU)
  Receive Date: 20230614
  Receipt Date: 20250722
  Transmission Date: 20251021
  Serious: Yes (Hospitalization, Other)
  Sender: MYLAN
  Company Number: EU-Almus S.r.l.-ES-NIC-23-00145

PATIENT
  Age: 71 Year
  Sex: Female

DRUGS (18)
  1. GABAPENTIN [Suspect]
     Active Substance: GABAPENTIN
     Indication: Pain
     Dosage: 300 MILLIGRAM, QD
     Dates: start: 2010, end: 2012
  2. GABAPENTIN [Suspect]
     Active Substance: GABAPENTIN
     Indication: Lumbar spinal stenosis
     Dosage: 600 MG Q3D (300-300-300)
     Dates: start: 2012, end: 201305
  3. GABAPENTIN [Suspect]
     Active Substance: GABAPENTIN
     Dosage: 800 MILLIGRAM TID (800-800-800)
     Dates: start: 201305
  4. GABAPENTIN [Suspect]
     Active Substance: GABAPENTIN
     Dates: start: 2013
  5. GABAPENTIN [Suspect]
     Active Substance: GABAPENTIN
     Dosage: 300 MILLIGRAM, TID, 300-300-300
     Dates: start: 2012
  6. GABAPENTIN [Suspect]
     Active Substance: GABAPENTIN
     Dosage: 600 MILLIGRAM, TID
     Dates: start: 2012, end: 201305
  7. GABAPENTIN [Suspect]
     Active Substance: GABAPENTIN
     Dosage: UNK UNK, QD
     Dates: start: 2013
  8. ETORICOXIB [Suspect]
     Active Substance: ETORICOXIB
     Indication: Product used for unknown indication
  9. AMITRIPTYLINE [Suspect]
     Active Substance: AMITRIPTYLINE
     Indication: Sciatica
     Dates: start: 2010, end: 2013
  10. CLORAZEPATE MONOPOTASSIUM [Suspect]
     Active Substance: CLORAZEPATE MONOPOTASSIUM
     Indication: Mixed anxiety and depressive disorder
     Dosage: 1 DOSAGE FORM, QD
     Dates: start: 2013, end: 2013
  11. CLORAZEPATE MONOPOTASSIUM [Suspect]
     Active Substance: CLORAZEPATE MONOPOTASSIUM
     Indication: Mixed anxiety and depressive disorder
     Dosage: 10 MILLIGRAM, QOD (10-0-10)
     Dates: start: 2013, end: 2013
  12. CLORAZEPATE MONOPOTASSIUM [Suspect]
     Active Substance: CLORAZEPATE MONOPOTASSIUM
     Dosage: UNK, TID (5-5-10)
     Dates: start: 2013
  13. CLORAZEPATE MONOPOTASSIUM [Suspect]
     Active Substance: CLORAZEPATE MONOPOTASSIUM
     Dosage: BID (10-0-10)
     Dates: start: 2013, end: 2013
  14. LORAZEPAM [Suspect]
     Active Substance: LORAZEPAM
     Indication: Anxiety
  15. TRAZODONE [Concomitant]
     Active Substance: TRAZODONE HYDROCHLORIDE
     Indication: Adjustment disorder with mixed disturbance of emotion and conduct
  16. ACETAMINOPHEN [Concomitant]
     Active Substance: ACETAMINOPHEN
     Indication: Sciatica
  17. CITALOPRAM [Concomitant]
     Active Substance: CITALOPRAM
     Indication: Anxiety
  18. CITALOPRAM [Concomitant]
     Active Substance: CITALOPRAM
     Dosage: 30 MILLIGRAM, QD
     Dates: start: 2013

REACTIONS (6)
  - Adjustment disorder with mixed anxiety and depressed mood [Not Recovered/Not Resolved]
  - Suicidal ideation [Recovered/Resolved]
  - Hallucination, auditory [Recovered/Resolved]
  - Overdose [Unknown]
  - Hypoaesthesia [Unknown]
  - Anxiety [Unknown]

NARRATIVE: CASE EVENT DATE: 20130101
